FAERS Safety Report 6955113-7 (Version None)
Quarter: 2010Q3

REPORT INFORMATION
  Report Type: 
  Country: None (occurrence: None)
  Receive Date: 20100830
  Receipt Date: 20100824
  Transmission Date: 20110219
  Serious: Yes (Death, Hospitalization, Other)
  Sender: FDA-Public Use
  Company Number: NL-SANOFI-AVENTIS-2010SA017010

PATIENT
  Age: 77 Year
  Sex: Male
  Weight: 84.5 kg

DRUGS (25)
  1. AFLIBERCEPT [Suspect]
     Route: 042
     Dates: start: 20100203, end: 20100203
  2. AFLIBERCEPT [Suspect]
     Route: 042
     Dates: start: 20100316, end: 20100316
  3. DOCETAXEL [Suspect]
     Route: 042
     Dates: start: 20100203, end: 20100203
  4. DOCETAXEL [Suspect]
     Route: 042
     Dates: start: 20100316, end: 20100316
  5. PREDNISONE [Suspect]
     Route: 048
     Dates: start: 20100223, end: 20100412
  6. ZOLADEX [Concomitant]
     Indication: HORMONE THERAPY
     Dates: start: 20020927
  7. PERSANTINE [Concomitant]
     Dates: start: 20050708
  8. ZOCOR [Concomitant]
     Dates: start: 20050708
  9. IMODIUM [Concomitant]
     Dates: start: 20100210
  10. ACETAMINOPHEN [Concomitant]
  11. DICLOFENAC [Concomitant]
     Dates: end: 20100423
  12. STRUMAZOL [Concomitant]
     Dates: start: 20100303
  13. PROPRANOLOL [Concomitant]
     Dates: start: 20100324
  14. OXAZEPAM [Concomitant]
     Dates: start: 20100413, end: 20100413
  15. FRAGMIN /SWE/ [Concomitant]
     Dates: start: 20100414
  16. FLUCONAZOLE [Concomitant]
     Dates: start: 20100416, end: 20100423
  17. EMLA [Concomitant]
     Dates: start: 20100422, end: 20100423
  18. DAKTARIN /NET/ [Concomitant]
     Dates: start: 20100422, end: 20100423
  19. CLEXANE [Concomitant]
     Dates: start: 20100423
  20. IPRATROPIUM BROMIDE AND ALBUTEROL SULFATE [Concomitant]
     Dates: start: 20100423
  21. ALL OTHER THERAPEUTIC PRODUCTS [Concomitant]
     Dates: start: 20100423
  22. DIFLUCAN [Concomitant]
     Dates: start: 20100423
  23. HALOPERIDOL [Concomitant]
     Dates: start: 20100417, end: 20100417
  24. HALOPERIDOL [Concomitant]
     Dates: start: 20100423
  25. NEXIUM [Concomitant]
     Dates: start: 20100413, end: 20100423

REACTIONS (3)
  - DYSPNOEA [None]
  - FEMUR FRACTURE [None]
  - VOMITING [None]
